FAERS Safety Report 12511999 (Version 2)
Quarter: 2016Q3

REPORT INFORMATION
  Report Type: Spontaneous
  Country: US (occurrence: US)
  Receive Date: 20160630
  Receipt Date: 20160805
  Transmission Date: 20161109
  Serious: Yes (Death, Hospitalization)
  Sender: FDA-Public Use
  Company Number: US-JNJFOC-20160521889

PATIENT
  Age: 77 Year
  Sex: Male

DRUGS (1)
  1. XARELTO [Suspect]
     Active Substance: RIVAROXABAN
     Indication: PULMONARY EMBOLISM
     Route: 048
     Dates: start: 20140219, end: 20140613

REACTIONS (2)
  - Pleural effusion [Fatal]
  - Haemorrhage [Unknown]

NARRATIVE: CASE EVENT DATE: 20140525
